FAERS Safety Report 7595014-7 (Version None)
Quarter: 2011Q2

REPORT INFORMATION
  Report Type: 
  Country: None (occurrence: None)
  Receive Date: 20110620
  Receipt Date: 20110415
  Transmission Date: 20111010
  Serious: Yes (Death, Hospitalization)
  Sender: FDA-Public Use
  Company Number: UTC-006392

PATIENT
  Age: 74 Year
  Sex: Female
  Weight: 65.45 kg

DRUGS (3)
  1. TYVASO [Suspect]
     Dosage: 144 MCG (36 MCG, 4 IN 1 D), INHALATION
     Route: 055
     Dates: start: 20100921
  2. DIURETICS (DIURETICS) [Concomitant]
  3. REVATIO [Concomitant]

REACTIONS (5)
  - RESPIRATORY FAILURE [None]
  - CLOSTRIDIUM TEST POSITIVE [None]
  - PNEUMONIA [None]
  - PELVIC FRACTURE [None]
  - FALL [None]
